FAERS Safety Report 8508977-X (Version None)
Quarter: 2012Q3

REPORT INFORMATION
  Report Type: 
  Country: None (occurrence: None)
  Receive Date: 20120713
  Receipt Date: 20120711
  Transmission Date: 20120928
  Serious: Yes (Death)
  Sender: FDA-Public Use
  Company Number: JM-B.I. PHARMACEUTICALS,INC./RIDGEFIELD-2012-CN-01467CN

PATIENT
  Age: 75 Year
  Sex: Male

DRUGS (3)
  1. SPIRIVA [Suspect]
     Dates: start: 20080101
  2. FLUTICASONE PROPIONATE/SALMETEROL [Concomitant]
  3. OXYGEN THERAPY [Concomitant]

REACTIONS (1)
  - DEATH [None]
